FAERS Safety Report 25054003 (Version 2)
Quarter: 2025Q2

REPORT INFORMATION
  Report Type: Spontaneous
  Country: US (occurrence: US)
  Receive Date: 20250307
  Receipt Date: 20250604
  Transmission Date: 20250717
  Serious: No
  Sender: SANOFI AVENTIS
  Company Number: US-SA-2025SA067073

PATIENT
  Age: 36 Year
  Sex: Male

DRUGS (1)
  1. DUPIXENT [Suspect]
     Active Substance: DUPILUMAB
     Indication: Eosinophilic oesophagitis
     Dosage: 300 MG, QW
     Route: 058
     Dates: start: 202403

REACTIONS (9)
  - Mental status changes [Unknown]
  - General physical condition abnormal [Unknown]
  - Skin discolouration [Unknown]
  - Eosinophilic oesophagitis [Unknown]
  - Pharyngeal swelling [Unknown]
  - Throat tightness [Unknown]
  - Therapeutic response shortened [Unknown]
  - Oesophageal dilation procedure [Unknown]
  - Rash [Unknown]

NARRATIVE: CASE EVENT DATE: 20250101
